FAERS Safety Report 5848100-3 (Version None)
Quarter: 2008Q3

REPORT INFORMATION
  Report Type: 
  Country: None (occurrence: None)
  Receive Date: 20080818
  Receipt Date: 20080818
  Transmission Date: 20090109
  Serious: Yes (Other)
  Sender: FDA-Public Use
  Company Number: A0743054A

PATIENT
  Age: 48 Year
  Sex: Female

DRUGS (2)
  1. ALLI [Suspect]
     Indication: WEIGHT LOSS DIET
     Route: 048
     Dates: start: 20080811, end: 20080811
  2. NO CONCURRENT MEDICATION [Concomitant]

REACTIONS (6)
  - CARDIAC ARREST [None]
  - CHEST DISCOMFORT [None]
  - DYSPNOEA [None]
  - FEAR [None]
  - PANIC ATTACK [None]
  - SUFFOCATION FEELING [None]
